FAERS Safety Report 5739071-9 (Version None)
Quarter: 2008Q2

REPORT INFORMATION
  Report Type: 
  Country: None (occurrence: None)
  Receive Date: 20080515
  Receipt Date: 20080502
  Transmission Date: 20081010
  Serious: Yes (Hospitalization)
  Sender: FDA-Public Use
  Company Number: DE-ELI_LILLY_AND_COMPANY-DE200703003014

PATIENT
  Sex: Female
  Weight: 69 kg

DRUGS (3)
  1. GEMCITABINE HCL [Suspect]
     Indication: BREAST CANCER
     Dosage: 1750 MG, UNK
     Route: 042
     Dates: start: 20070131
  2. DOCETAXEL [Suspect]
     Indication: BREAST CANCER
     Dosage: 131 MG, UNK
     Route: 042
     Dates: start: 20070131
  3. ONDANSETRON [Concomitant]
     Dosage: 8 MG, UNK
     Route: 042
     Dates: start: 20070131

REACTIONS (1)
  - BRONCHIOLITIS [None]
